FAERS Safety Report 10056447 (Version 2)
Quarter: 2014Q2

REPORT INFORMATION
  Report Type: Spontaneous
  Country: US (occurrence: US)
  Receive Date: 20140403
  Receipt Date: 20140411
  Transmission Date: 20141212
  Serious: No
  Sender: FDA-Public Use
  Company Number: US-BAXTER-2014BAX014243

PATIENT
  Sex: Male

DRUGS (4)
  1. DIANEAL LOW CALCIUM [Suspect]
     Indication: PERITONEAL DIALYSIS
     Route: 033
     Dates: end: 201403
  2. DIANEAL LOW CALCIUM [Suspect]
     Route: 033
     Dates: start: 201403
  3. EXTRANEAL [Suspect]
     Indication: PERITONEAL DIALYSIS
     Route: 033
     Dates: end: 201403
  4. EXTRANEAL [Suspect]
     Route: 033
     Dates: start: 201403

REACTIONS (5)
  - Peritoneal dialysis complication [Recovered/Resolved]
  - Somnolence [Unknown]
  - Memory impairment [Unknown]
  - Potentiating drug interaction [Unknown]
  - Malaise [Recovered/Resolved]
